FAERS Safety Report 5391070-5 (Version None)
Quarter: 2007Q3

REPORT INFORMATION
  Report Type: 
  Country: None (occurrence: None)
  Receive Date: 20070719
  Receipt Date: 20070710
  Transmission Date: 20080115
  Serious: Yes (Other)
  Sender: FDA-Public Use
  Company Number: US-ELI_LILLY_AND_COMPANY-US200707000438

PATIENT
  Age: 76 Year
  Sex: Male

DRUGS (1)
  1. CIALIS [Suspect]
     Dosage: 10 MG, AS NEEDED
     Dates: start: 20060101

REACTIONS (3)
  - POLYP COLORECTAL [None]
  - THERAPEUTIC RESPONSE DECREASED [None]
  - URETHRAL STENOSIS [None]
